FAERS Safety Report 6214658-8 (Version None)
Quarter: 2009Q2

REPORT INFORMATION
  Report Type: 
  Country: None (occurrence: None)
  Receive Date: 20090604
  Receipt Date: 20090522
  Transmission Date: 20091009
  Serious: Yes (Hospitalization)
  Sender: FDA-Public Use
  Company Number: CO-PFIZER INC-2008085054

PATIENT
  Age: 60 Year

DRUGS (3)
  1. CHAMPIX [Suspect]
     Indication: SMOKING CESSATION THERAPY
     Dosage: 1 MG, 2X/DAY
     Route: 048
     Dates: start: 20080623, end: 20080811
  2. ALL OTHER THERAPEUTIC PRODUCTS [Suspect]
     Indication: ARTHRITIS
     Dosage: UNK
     Dates: start: 20080501
  3. CARDIOASPIRINA [Concomitant]
     Dosage: UNK

REACTIONS (1)
  - GASTRIC ULCER HAEMORRHAGE [None]
